FAERS Safety Report 9734151 (Version 3)
Quarter: 2013Q4

REPORT INFORMATION
  Report Type: Spontaneous
  Country: US (occurrence: US)
  Receive Date: 20131205
  Receipt Date: 20131212
  Transmission Date: 20140711
  Serious: Yes (Life-Threatening, Other)
  Sender: FDA-Public Use
  Company Number: 2013SP003243

PATIENT
  Age: 48 Year
  Sex: Female
  Weight: 125 kg

DRUGS (20)
  1. LATUDA [Suspect]
     Indication: BIPOLAR DISORDER
     Route: 048
     Dates: start: 20131001, end: 20131005
  2. LATUDA [Suspect]
     Indication: BIPOLAR DISORDER
     Route: 048
     Dates: start: 20130924, end: 20130930
  3. LATUDA [Suspect]
     Indication: BIPOLAR DISORDER
     Route: 048
     Dates: start: 20130917, end: 20130923
  4. LITHIUM [Concomitant]
  5. LAMICTAL [Concomitant]
  6. LAMICTAL [Concomitant]
  7. LEVOXYL [Concomitant]
  8. CYTOMEL [Concomitant]
  9. PREVACID [Concomitant]
  10. SYMBICORT [Concomitant]
     Route: 055
  11. XOPENEX HFA INHALATION AEROSOL [Concomitant]
     Route: 055
  12. CLONAZEPAM [Concomitant]
  13. ASTEPRO [Concomitant]
     Route: 045
  14. MULTIVITAMIN                       /00831701/ [Concomitant]
     Route: 048
  15. COZAAR [Concomitant]
     Indication: PROTEINURIA
  16. HYDROCHLOROTHIAZIDE [Concomitant]
     Indication: HYPERTENSION
  17. VITAMIN D                          /00107901/ [Concomitant]
     Indication: VITAMIN D DEFICIENCY
  18. TOPROL [Concomitant]
     Indication: HYPERTENSION
  19. INFLUENZA VACCINE [Concomitant]
     Route: 030
     Dates: start: 20131022
  20. PERPHENAZINE [Concomitant]

REACTIONS (7)
  - Chest pain [Recovered/Resolved]
  - Oedema [Recovered/Resolved]
  - Dyspnoea [Recovered/Resolved]
  - Pulmonary oedema [Recovered/Resolved]
  - Nocturia [Recovered/Resolved]
  - Chest discomfort [Recovered/Resolved]
  - Weight increased [Recovered/Resolved]
